FAERS Safety Report 4509111-3 (Version None)
Quarter: 2004Q4

REPORT INFORMATION
  Report Type: 
  Country: None (occurrence: None)
  Receive Date: 20041025
  Receipt Date: 20031223
  Transmission Date: 20050328
  Serious: Yes (Other)
  Sender: FDA-Public Use
  Company Number: NSADSS2003023805

PATIENT
  Age: 54 Year
  Sex: Female
  Weight: 69.8539 kg

DRUGS (5)
  1. REMICADE [Suspect]
     Indication: RHEUMATOID ARTHRITIS
     Dosage: 200 MG, 1 IN 1 AS NECESSARY, INTRAVENOUS DRIP
     Route: 041
     Dates: start: 20030501, end: 20030501
  2. REMICADE [Suspect]
     Indication: RHEUMATOID ARTHRITIS
     Dosage: 200 MG, 1 IN 1 AS NECESSARY, INTRAVENOUS DRIP
     Route: 041
     Dates: start: 20030515, end: 20030515
  3. BENADRYL [Concomitant]
  4. TYLENOL [Concomitant]
  5. ALLEGRA [Concomitant]

REACTIONS (1)
  - HYPERSENSITIVITY [None]
